FAERS Safety Report 21224020 (Version 1)
Quarter: 2022Q3

REPORT INFORMATION
  Report Type: Spontaneous
  Country: US (occurrence: US)
  Receive Date: 20220817
  Receipt Date: 20220817
  Transmission Date: 20221027
  Serious: No
  Sender: FDA-Public Use
  Company Number: US-SA-2021MK000107

PATIENT
  Age: 65 Year
  Sex: Male

DRUGS (2)
  1. AFREZZA [Suspect]
     Active Substance: INSULIN HUMAN
     Indication: Diabetes mellitus
     Dates: start: 20210714
  2. AFREZZA [Suspect]
     Active Substance: INSULIN HUMAN
     Dosage: UP TO 36 UNITS DAILY
     Dates: start: 20210714

REACTIONS (2)
  - Blood glucose increased [Unknown]
  - Product physical issue [Unknown]

NARRATIVE: CASE EVENT DATE: 20210701
